FAERS Safety Report 18677972 (Version 1)
Quarter: 2020Q4

REPORT INFORMATION
  Report Type: Spontaneous
  Country: US (occurrence: US)
  Receive Date: 20201229
  Receipt Date: 20201229
  Transmission Date: 20210114
  Serious: No
  Sender: FDA-Public Use
  Company Number: US-PFIZER INC-2019068699

PATIENT
  Age: 56 Year
  Sex: Female
  Weight: 62.13 kg

DRUGS (3)
  1. RELPAX [Suspect]
     Active Substance: ELETRIPTAN HYDROBROMIDE
     Indication: MIGRAINE
     Dosage: 40 MG
  2. RELPAX [Suspect]
     Active Substance: ELETRIPTAN HYDROBROMIDE
     Dosage: 40 MG, 2X/DAY ( TOOK 1 TABLET IN THE MORNING, WAITED 4-6 HOURS BEFORE TAKING ANOTHER ONE)
  3. RELPAX [Suspect]
     Active Substance: ELETRIPTAN HYDROBROMIDE
     Dosage: 80 MG, DAILY (TAKE 2 IN ONE DAY)

REACTIONS (1)
  - Migraine [Unknown]
